FAERS Safety Report 24878092 (Version 1)
Quarter: 2025Q1

REPORT INFORMATION
  Report Type: Report from Study
  Country: US (occurrence: US)
  Receive Date: 20250123
  Receipt Date: 20250123
  Transmission Date: 20250409
  Serious: Yes (Hospitalization)
  Sender: MYLAN
  Company Number: US-MYLANLABS-2025M1005523

PATIENT
  Sex: Male

DRUGS (4)
  1. VORICONAZOLE [Suspect]
     Active Substance: VORICONAZOLE
     Indication: Microsporidia infection
     Route: 061
  2. VORICONAZOLE [Suspect]
     Active Substance: VORICONAZOLE
     Indication: Keratitis
  3. ALBENDAZOLE [Suspect]
     Active Substance: ALBENDAZOLE
     Indication: Microsporidia infection
     Route: 048
  4. ALBENDAZOLE [Suspect]
     Active Substance: ALBENDAZOLE
     Indication: Keratitis

REACTIONS (1)
  - Drug ineffective [Unknown]
